FAERS Safety Report 19932496 (Version 1)
Quarter: 2021Q4

REPORT INFORMATION
  Report Type: Spontaneous
  Country: US (occurrence: US)
  Receive Date: 20211007
  Receipt Date: 20211007
  Transmission Date: 20220303
  Serious: No
  Sender: FDA-Public Use
  Company Number: None

PATIENT
  Age: 63 Year
  Sex: Female
  Weight: 110 kg

DRUGS (13)
  1. PRIVIGEN [Suspect]
     Active Substance: HUMAN IMMUNOGLOBULIN G
     Indication: Small fibre neuropathy
     Dosage: ?          OTHER FREQUENCY:WEEKLY;
     Route: 041
     Dates: start: 20210804
  2. Acetaminophen 650 mg po [Concomitant]
  3. DIPHENHYDRAMINE HYDROCHLORIDE [Concomitant]
     Active Substance: DIPHENHYDRAMINE HYDROCHLORIDE
  4. Ketorolac 15 mg IV [Concomitant]
  5. Methylprednisolone 125 mg IV [Concomitant]
  6. amitriptyline 10 mg po [Concomitant]
  7. Levothyroxine 100 mcg po [Concomitant]
  8. Miralax 17 gm po [Concomitant]
  9. Omega 3 1000 mg po [Concomitant]
  10. Protonix 40 mg po [Concomitant]
  11. Propranolol 20 mg po [Concomitant]
  12. Bactrim DS po [Concomitant]
  13. vitamin D 1.25 mg po [Concomitant]

REACTIONS (7)
  - Infusion related reaction [None]
  - Urticaria [None]
  - Pruritus [None]
  - Infusion site erythema [None]
  - Flushing [None]
  - Headache [None]
  - Fatigue [None]

NARRATIVE: CASE EVENT DATE: 20210922
